FAERS Safety Report 7321112-9 (Version None)
Quarter: 2011Q1

REPORT INFORMATION
  Report Type: 
  Country: None (occurrence: None)
  Receive Date: 20110228
  Receipt Date: 20110211
  Transmission Date: 20110831
  Serious: Yes (Other)
  Sender: FDA-Public Use
  Company Number: BR-SANOFI-AVENTIS-2011SA011906

PATIENT
  Age: 24 Year
  Sex: Female

DRUGS (4)
  1. DDAVP [Suspect]
     Indication: DIABETES INSIPIDUS
     Route: 045
     Dates: start: 20100701, end: 20100701
  2. ANTIBIOTICS [Concomitant]
     Route: 042
     Dates: start: 20100701
  3. DDAVP [Suspect]
     Route: 045
     Dates: start: 20100701
  4. ANALGESICS [Concomitant]
     Route: 042
     Dates: start: 20100701

REACTIONS (2)
  - CONVULSION [None]
  - ACCIDENTAL OVERDOSE [None]
